FAERS Safety Report 7474496-5 (Version None)
Quarter: 2011Q2

REPORT INFORMATION
  Report Type: 
  Country: None (occurrence: None)
  Receive Date: 20110512
  Receipt Date: 20110221
  Transmission Date: 20111010
  Serious: Yes (Other)
  Sender: FDA-Public Use
  Company Number: PT-RANBAXY-2011RR-44209

PATIENT
  Sex: Female
  Weight: 22 kg

DRUGS (1)
  1. CLARITHROMYCIN [Suspect]
     Indication: BRONCHIOLITIS
     Dosage: 5 ML, SINGLE
     Route: 048
     Dates: start: 20110129, end: 20110129

REACTIONS (7)
  - NAUSEA [None]
  - THROAT IRRITATION [None]
  - PRODUCT COMPOUNDING QUALITY ISSUE [None]
  - ABDOMINAL PAIN [None]
  - DYSPEPSIA [None]
  - ORAL PAIN [None]
  - DYSGEUSIA [None]
